FAERS Safety Report 8515501-4 (Version None)
Quarter: 2012Q3

REPORT INFORMATION
  Report Type: 
  Country: None (occurrence: None)
  Receive Date: 20120705
  Receipt Date: 20120620
  Transmission Date: 20120928
  Serious: Yes (Life-Threatening, Hospitalization)
  Sender: FDA-Public Use
  Company Number: JP-2012-10217

PATIENT
  Age: 41 Year
  Sex: Male
  Weight: 95 kg

DRUGS (17)
  1. OPC-41061 (TOLVAPTAN) TABLET [Suspect]
     Indication: CONGENITAL CYSTIC KIDNEY DISEASE
     Dosage: 90 MG, DAILY DOSE, ORAL
     Route: 048
     Dates: start: 20110309, end: 20120108
  2. OPC-41061 (TOLVAPTAN) TABLET [Suspect]
     Indication: CONGENITAL CYSTIC KIDNEY DISEASE
     Dosage: 90 MG, DAILY DOSE, ORAL
     Route: 048
     Dates: start: 20120418
  3. OMEPRAZOLE [Concomitant]
  4. MUCODYNE (CARBOCISTEINE) [Concomitant]
  5. DIOVAN [Concomitant]
  6. ACETAMINOPHEN [Concomitant]
  7. URALYT (POTASSIUM CITRATE, SODIUM CITRATE ACID) [Concomitant]
  8. AZUNOL (SODIUM GUALENATE) [Concomitant]
  9. JUSO (SODIUM BICARBONATE) [Concomitant]
  10. METHYCOOL (MECOBALAMIN) [Concomitant]
  11. URINOM (BENZBROMARONE) [Concomitant]
  12. COLCHICINE [Concomitant]
  13. WYTENS (GUANABEZ ACETATE) [Concomitant]
  14. TRANEXAMIC ACID [Concomitant]
  15. BANAN [Concomitant]
  16. AMLODIPINE BESYLATE [Concomitant]
  17. ALLOPURINOL [Concomitant]

REACTIONS (13)
  - SEPSIS [None]
  - HAEMATURIA [None]
  - PROTHROMBIN TIME PROLONGED [None]
  - COAGULOPATHY [None]
  - FIBRIN DEGRADATION PRODUCTS INCREASED [None]
  - RENAL CYST INFECTION [None]
  - ARTHRALGIA [None]
  - ABDOMINAL DISTENSION [None]
  - ASPARTATE AMINOTRANSFERASE INCREASED [None]
  - ALANINE AMINOTRANSFERASE INCREASED [None]
  - ACTIVATED PARTIAL THROMBOPLASTIN TIME PROLONGED [None]
  - BLOOD PRESSURE DIASTOLIC INCREASED [None]
  - FIBRIN D DIMER INCREASED [None]
